FAERS Safety Report 7547556-8 (Version None)
Quarter: 2011Q2

REPORT INFORMATION
  Report Type: 
  Country: None (occurrence: None)
  Receive Date: 20110614
  Receipt Date: 20110612
  Transmission Date: 20111010
  Serious: No
  Sender: FDA-Public Use
  Company Number: US-PFIZER INC-2011128160

PATIENT
  Sex: Female

DRUGS (3)
  1. ADVIL LIQUI-GELS [Suspect]
     Indication: ARTHRALGIA
  2. BENICAR [Concomitant]
     Indication: HYPERTENSION
     Dosage: 40 MG, DAILY
  3. ADVIL LIQUI-GELS [Suspect]
     Indication: MUSCULOSKELETAL STIFFNESS
     Dosage: UNK
     Route: 048
     Dates: start: 20080101

REACTIONS (2)
  - RASH [None]
  - BLISTER [None]
